FAERS Safety Report 7277225-3 (Version None)
Quarter: 2011Q1

REPORT INFORMATION
  Report Type: 
  Country: None (occurrence: None)
  Receive Date: 20110113
  Receipt Date: 20110113
  Transmission Date: 20110831
  Serious: Yes (Hospitalization, Other)
  Sender: FDA-Public Use
  Company Number: None

PATIENT
  Age: 47 Year
  Sex: Female
  Weight: 63.5036 kg

DRUGS (1)
  1. TRIAD ALCOHOL PREP PADS FOR INJ. N/A TRIAD [Suspect]
     Indication: INFECTION PROPHYLAXIS
     Dosage: CLEAN PRIOR TO INJECTION DAILY SQ
     Route: 058
     Dates: start: 20100101

REACTIONS (5)
  - CELLULITIS STAPHYLOCOCCAL [None]
  - FEELING HOT [None]
  - PRODUCT QUALITY ISSUE [None]
  - PRODUCT CONTAMINATION MICROBIAL [None]
  - OEDEMA PERIPHERAL [None]
